FAERS Safety Report 20509471 (Version 1)
Quarter: 2022Q1

REPORT INFORMATION
  Report Type: Report from Study
  Country: US (occurrence: US)
  Receive Date: 20220224
  Receipt Date: 20220224
  Transmission Date: 20220423
  Serious: Yes (Other)
  Sender: FDA-Public Use
  Company Number: US-NOVARTISPH-NVSC2022US037582

PATIENT
  Sex: Female

DRUGS (1)
  1. ENTRESTO [Suspect]
     Active Substance: SACUBITRIL\VALSARTAN
     Indication: Product used for unknown indication
     Dosage: 1 DOSAGE FORM, BID (24/26 MG)
     Route: 048
     Dates: start: 2021

REACTIONS (6)
  - Atrial fibrillation [Unknown]
  - Type 2 diabetes mellitus [Unknown]
  - Blindness [Unknown]
  - Mobility decreased [Unknown]
  - Urinary incontinence [Unknown]
  - Decubitus ulcer [Recovered/Resolved]
